FAERS Safety Report 4965873-2 (Version None)
Quarter: 2006Q2

REPORT INFORMATION
  Report Type: 
  Country: None (occurrence: None)
  Receive Date: 20060407
  Receipt Date: 20060328
  Transmission Date: 20061013
  Serious: Yes (Other)
  Sender: FDA-Public Use
  Company Number: US-JNJFOC-20060302011

PATIENT
  Age: 8 Year
  Sex: Male

DRUGS (5)
  1. RISPERDAL [Suspect]
     Route: 048
     Dates: start: 20031101
  2. ADDERALL XR 10 [Concomitant]
     Route: 048
  3. ADDERALL XR 10 [Concomitant]
     Route: 048
  4. ADDERALL XR 10 [Concomitant]
     Route: 048
  5. ADDERALL XR 10 [Concomitant]
     Route: 048

REACTIONS (1)
  - WHITE BLOOD CELL COUNT DECREASED [None]
